FAERS Safety Report 5793281-3 (Version None)
Quarter: 2008Q2

REPORT INFORMATION
  Report Type: 
  Country: None (occurrence: None)
  Receive Date: 20080627
  Receipt Date: 20080613
  Transmission Date: 20081010
  Serious: Yes (Death)
  Sender: FDA-Public Use
  Company Number: US-GENENTECH-262823

PATIENT
  Age: 80 Year
  Sex: Female

DRUGS (4)
  1. BEVACIZUMAB [Suspect]
     Indication: COLON CANCER METASTATIC
     Dosage: UNK, UNK
     Dates: start: 20070702
  2. CAPECITABINE [Concomitant]
     Indication: COLON CANCER METASTATIC
     Dates: end: 20070801
  3. DARVOCET [Concomitant]
     Indication: DRUG USE FOR UNKNOWN INDICATION
  4. ANTIEMETIC [Concomitant]
     Indication: DRUG USE FOR UNKNOWN INDICATION

REACTIONS (1)
  - DEATH [None]
